FAERS Safety Report 12194991 (Version 1)
Quarter: 2016Q1

REPORT INFORMATION
  Report Type: Spontaneous
  Country: None (occurrence: None)
  Receive Date: 20160318
  Receipt Date: 20160318
  Transmission Date: 20160526
  Serious: Yes (Other)
  Sender: FDA-Public Use
  Company Number: None

PATIENT
  Age: 71 Year
  Sex: Male
  Weight: 79.83 kg

DRUGS (1)
  1. PROLIA [Suspect]
     Active Substance: DENOSUMAB
     Indication: OSTEOPOROSIS
     Dosage: 60 MG Q 6 MONTHS SUBCUTANEOUS
     Route: 058
     Dates: start: 20160229

REACTIONS (2)
  - Dermatitis [None]
  - Pyrexia [None]

NARRATIVE: CASE EVENT DATE: 20160309
